FAERS Safety Report 21695848 (Version 1)
Quarter: 2022Q4

REPORT INFORMATION
  Report Type: Report from Study
  Country: US (occurrence: US)
  Receive Date: 20221207
  Receipt Date: 20221207
  Transmission Date: 20230113
  Serious: No
  Sender: FDA-Public Use
  Company Number: US-ABBVIE-4188039

PATIENT
  Sex: Female

DRUGS (3)
  1. ORIAHNN [Suspect]
     Active Substance: ELAGOLIX SODIUM\ESTRADIOL\NORETHINDRONE
     Indication: Uterine leiomyoma
     Dosage: LAST ADMINISTRATION DATE 2022
     Route: 048
     Dates: start: 20221012
  2. Moderna [Concomitant]
     Indication: COVID-19 immunisation
     Route: 030
  3. ORIAHNN [Suspect]
     Active Substance: ELAGOLIX SODIUM\ESTRADIOL\NORETHINDRONE
     Indication: Uterine leiomyoma
     Dosage: LAST ADMINISTRATION DATE 2022
     Route: 048
     Dates: start: 20221012

REACTIONS (6)
  - Abnormal uterine bleeding [Not Recovered/Not Resolved]
  - Abdominal discomfort [Not Recovered/Not Resolved]
  - Dizziness [Not Recovered/Not Resolved]
  - Headache [Recovered/Resolved]
  - Intermenstrual bleeding [Recovered/Resolved]
  - Abdominal pain upper [Recovered/Resolved]
